FAERS Safety Report 22301371 (Version 2)
Quarter: 2023Q2

REPORT INFORMATION
  Report Type: Spontaneous
  Country: UA (occurrence: UA)
  Receive Date: 20230509
  Receipt Date: 20230607
  Transmission Date: 20230722
  Serious: Yes (Death, Other)
  Sender: FDA-Public Use
  Company Number: UA-ABBVIE-4760518

PATIENT
  Age: 36 Year
  Sex: Female

DRUGS (3)
  1. VENETOCLAX [Suspect]
     Active Substance: VENETOCLAX
     Indication: Acute myeloid leukaemia
     Dosage: DURATION TEXT: 1 CYCLE
     Route: 048
     Dates: start: 20210303, end: 20210316
  2. VENETOCLAX [Suspect]
     Active Substance: VENETOCLAX
     Indication: Acute myeloid leukaemia
     Dosage: 100 MILLIGRAM
     Route: 048
     Dates: start: 20210210, end: 20210223
  3. AZACITIDINE [Suspect]
     Active Substance: AZACITIDINE
     Indication: Acute myeloid leukaemia
     Dosage: DURATION TEXT: 1 CYCLE
     Route: 065
     Dates: start: 20210210, end: 20210217

REACTIONS (4)
  - Haemorrhagic stroke [Fatal]
  - Cerebral haemorrhage [Fatal]
  - Neutropenia [Unknown]
  - Thrombocytopenia [Unknown]

NARRATIVE: CASE EVENT DATE: 20210316
